FAERS Safety Report 20656092 (Version 1)
Quarter: 2022Q1

REPORT INFORMATION
  Report Type: Report from Study
  Country: GR (occurrence: GR)
  Receive Date: 20220330
  Receipt Date: 20220330
  Transmission Date: 20220423
  Serious: Yes (Death, Other)
  Sender: FDA-Public Use
  Company Number: GR-ABBVIE-22K-066-4338887-00

PATIENT
  Age: 79 Year
  Sex: Female
  Weight: 75 kg

DRUGS (17)
  1. CARBIDOPA\LEVODOPA [Suspect]
     Active Substance: CARBIDOPA\LEVODOPA
     Indication: Parkinson^s disease
     Dosage: MORNING DOSE: 6.2ML; CONTINUOUS RATE: 3.4ML/H; EXTRA DOSE: 1.9ML
     Route: 050
     Dates: start: 20190531
  2. CARBIDOPA\LEVODOPA [Suspect]
     Active Substance: CARBIDOPA\LEVODOPA
  3. REMERON [Concomitant]
     Active Substance: MIRTAZAPINE
     Indication: Product used for unknown indication
     Dosage: UNIT DOSE: 22.5MG / FORM STRENGTH: 45MG
     Route: 048
  4. VENLAFAXINE HYDROCHLORIDE [Concomitant]
     Active Substance: VENLAFAXINE HYDROCHLORIDE
     Indication: Product used for unknown indication
     Route: 048
  5. PRAMIPEXOLE [Concomitant]
     Active Substance: PRAMIPEXOLE
     Indication: Parkinson^s disease
     Dosage: 1.05MG
     Route: 048
  6. SYMMETREL [Concomitant]
     Active Substance: AMANTADINE HYDROCHLORIDE
     Indication: Parkinson^s disease
     Route: 048
  7. TRANXENE [Concomitant]
     Active Substance: CLORAZEPATE DIPOTASSIUM
     Indication: Sleep disorder
     Route: 048
     Dates: start: 202112
  8. TRANXENE [Concomitant]
     Active Substance: CLORAZEPATE DIPOTASSIUM
     Indication: Nightmare
  9. TRANXENE [Concomitant]
     Active Substance: CLORAZEPATE DIPOTASSIUM
     Indication: Abnormal dreams
  10. QUETIAPINE [Concomitant]
     Active Substance: QUETIAPINE
     Indication: Hallucination
  11. QUETIAPINE [Concomitant]
     Active Substance: QUETIAPINE
     Indication: Obsessive thoughts
     Route: 048
  12. BIOFENAC [Concomitant]
     Indication: Hallucination
     Route: 048
  13. BIOFENAC [Concomitant]
     Indication: Obsessive thoughts
  14. QUETIAPINE [Concomitant]
     Active Substance: QUETIAPINE
     Indication: Hallucination
     Route: 048
  15. QUETIAPINE [Concomitant]
     Active Substance: QUETIAPINE
     Indication: Obsessive thoughts
  16. REMERON [Concomitant]
     Active Substance: MIRTAZAPINE
     Indication: Hallucination
     Route: 048
  17. REMERON [Concomitant]
     Active Substance: MIRTAZAPINE
     Indication: Obsessive thoughts

REACTIONS (1)
  - Cardiac arrest [Fatal]

NARRATIVE: CASE EVENT DATE: 20220329
